FAERS Safety Report 13371447 (Version 3)
Quarter: 2018Q4

REPORT INFORMATION
  Report Type: Report from Study
  Country: US (occurrence: US)
  Receive Date: 20170324
  Receipt Date: 20181005
  Transmission Date: 20190204
  Serious: Yes (Other)
  Sender: FDA-Public Use
  Company Number: US-JAZZ-2017-US-003385

PATIENT
  Sex: Male

DRUGS (15)
  1. PEPCID AC [Concomitant]
     Active Substance: FAMOTIDINE
  2. TYLENOL PM EXTRA STRENGTH [Concomitant]
     Active Substance: ACETAMINOPHEN\DIPHENHYDRAMINE HYDROCHLORIDE
  3. XYREM [Suspect]
     Active Substance: SODIUM OXYBATE
     Dosage: 2.25 G, BID
     Route: 048
     Dates: start: 2015, end: 2015
  4. ALEVE [Concomitant]
     Active Substance: NAPROXEN SODIUM
  5. AMLODIPINE BENAZEPRIL [Concomitant]
     Active Substance: AMLODIPINE BESYLATE\BENAZEPRIL HYDROCHLORIDE
  6. VENLAFAXINE HCL [Concomitant]
     Active Substance: VENLAFAXINE HYDROCHLORIDE
  7. XYREM [Suspect]
     Active Substance: SODIUM OXYBATE
     Dosage: 3.5 G, BID
     Route: 048
     Dates: start: 201610, end: 201703
  8. XYREM [Suspect]
     Active Substance: SODIUM OXYBATE
     Dosage: UNK
     Route: 048
     Dates: start: 2015, end: 2016
  9. NUVIGIL [Concomitant]
     Active Substance: ARMODAFINIL
  10. COLCRYS [Concomitant]
     Active Substance: COLCHICINE
  11. XYREM [Suspect]
     Active Substance: SODIUM OXYBATE
     Indication: NARCOLEPSY
     Dosage: 2.25 G, BID
     Route: 048
     Dates: start: 201502, end: 201502
  12. XYREM [Suspect]
     Active Substance: SODIUM OXYBATE
     Dosage: 3.5 G, BID
     Route: 048
     Dates: start: 2016
  13. ASPIRIN EC [Concomitant]
     Active Substance: ASPIRIN
  14. XYREM [Suspect]
     Active Substance: SODIUM OXYBATE
     Indication: CATAPLEXY
     Dosage: DOSE ADJUSTMENTS
     Route: 048
     Dates: start: 201502, end: 201610
  15. XYREM [Suspect]
     Active Substance: SODIUM OXYBATE
     Dosage: 4.5 G, BID
     Route: 048
     Dates: start: 201703

REACTIONS (12)
  - Hallucination [Recovering/Resolving]
  - Thrombosis [Unknown]
  - Peripheral swelling [Not Recovered/Not Resolved]
  - Joint swelling [Not Recovered/Not Resolved]
  - Vitamin D deficiency [Unknown]
  - Memory impairment [Unknown]
  - Dyspepsia [Recovering/Resolving]
  - Arthritis [Unknown]
  - Malaise [Recovering/Resolving]
  - Gout [Unknown]
  - Synovial cyst [Unknown]
  - Depression [Unknown]

NARRATIVE: CASE EVENT DATE: 2016
